FAERS Safety Report 10900215 (Version 2)
Quarter: 2015Q2

REPORT INFORMATION
  Report Type: Spontaneous
  Country: US (occurrence: US)
  Receive Date: 20150310
  Receipt Date: 20150430
  Transmission Date: 20150821
  Serious: Yes (Other)
  Sender: FDA-Public Use
  Company Number: US-AMGEN-USASP2015020984

PATIENT
  Age: 87 Year
  Sex: Female
  Weight: 61.22 kg

DRUGS (11)
  1. IMDUR [Concomitant]
     Active Substance: ISOSORBIDE MONONITRATE
     Indication: CARDIAC FAILURE
     Dosage: UNK
  2. METOPROLOL [Concomitant]
     Active Substance: METOPROLOL
     Indication: BLOOD PRESSURE
     Dosage: 50 MG, DAILY
  3. PROCRIT [Suspect]
     Active Substance: ERYTHROPOIETIN
     Indication: MYELODYSPLASTIC SYNDROME
     Dosage: UNK UNK, WEEKLY
     Route: 058
  4. LASIX [Concomitant]
     Active Substance: FUROSEMIDE
     Indication: CARDIAC DISORDER
     Dosage: 40 MG, DAILY
  5. ASPIRIN                            /00002701/ [Concomitant]
     Active Substance: ASPIRIN
     Indication: ARTHRITIS
     Dosage: UNK UNK, AS NECESSARY
  6. ZOFRAN                             /00955301/ [Concomitant]
     Active Substance: ONDANSETRON HYDROCHLORIDE
     Indication: NAUSEA
     Dosage: UNK UNK, AS NECESSARY
  7. PLAVIX [Concomitant]
     Active Substance: CLOPIDOGREL BISULFATE
     Indication: STENT PLACEMENT
     Dosage: 75 MG, DAILY
  8. COQ10                              /00517201/ [Concomitant]
     Dosage: UNK UNK, DAILY
  9. MAGNESIUM [Concomitant]
     Active Substance: MAGNESIUM
     Dosage: UNK UNK, DAILY
  10. ENALAPRIL [Concomitant]
     Active Substance: ENALAPRIL
     Indication: CARDIAC DISORDER
     Dosage: 10 MG, DAILY
  11. GLUCOVANCE [Concomitant]
     Active Substance: GLYBURIDE\METFORMIN HYDROCHLORIDE
     Dosage: 5/500 MG, TWICE DAILY

REACTIONS (6)
  - Injection site haematoma [Not Recovered/Not Resolved]
  - Blood pressure increased [Recovered/Resolved]
  - Haemoglobin decreased [Not Recovered/Not Resolved]
  - Contusion [Not Recovered/Not Resolved]
  - Injection site nodule [Not Recovered/Not Resolved]
  - Off label use [Unknown]

NARRATIVE: CASE EVENT DATE: 201502
